FAERS Safety Report 5462298-0 (Version None)
Quarter: 2007Q3

REPORT INFORMATION
  Report Type: 
  Country: None (occurrence: None)
  Receive Date: 20070918
  Receipt Date: 20070918
  Transmission Date: 20080115
  Serious: Yes (Other)
  Sender: FDA-Public Use
  Company Number: None

PATIENT
  Sex: Male
  Weight: 77.2 kg

DRUGS (1)
  1. QUINACRINE [Suspect]
     Indication: PROSTATE CANCER
     Dosage: 100MG ONCE DAILY P.O.
     Route: 048
     Dates: start: 20070719, end: 20070817

REACTIONS (1)
  - PLATELET COUNT DECREASED [None]
